FAERS Safety Report 8029550-6 (Version None)
Quarter: 2012Q1

REPORT INFORMATION
  Report Type: 
  Country: None (occurrence: None)
  Receive Date: 20120109
  Receipt Date: 20120106
  Transmission Date: 20120608
  Serious: Yes (Other)
  Sender: FDA-Public Use
  Company Number: US-PFIZER INC-2012004989

PATIENT
  Sex: Male
  Weight: 88.435 kg

DRUGS (5)
  1. ZOCOR [Concomitant]
     Indication: BLOOD CHOLESTEROL INCREASED
     Dosage: UNK
  2. ZYLOPRIM [Concomitant]
     Indication: ARTHRITIS
     Dosage: UNK
  3. CHANTIX [Suspect]
     Indication: SMOKING CESSATION THERAPY
     Dosage: 0.5 MG, DAILY
     Route: 048
     Dates: start: 20120102, end: 20120101
  4. NEURONTIN [Concomitant]
     Indication: NERVE INJURY
     Dosage: 2800 MG, UNK
  5. CHANTIX [Suspect]
     Dosage: 0.5 MG, 2X/DAY
     Route: 048
     Dates: start: 20120101

REACTIONS (3)
  - ANGER [None]
  - ABNORMAL BEHAVIOUR [None]
  - AGGRESSION [None]
